FAERS Safety Report 6098071-2 (Version None)
Quarter: 2009Q1

REPORT INFORMATION
  Report Type: 
  Country: None (occurrence: None)
  Receive Date: 20090227
  Receipt Date: 20090220
  Transmission Date: 20090719
  Serious: Yes (Hospitalization)
  Sender: FDA-Public Use
  Company Number: JP-ABBOTT-09P-087-0558709-00

PATIENT
  Sex: Female

DRUGS (4)
  1. KLARICID TAB [Suspect]
     Indication: BRONCHITIS
     Dosage: 400 MG
     Route: 065
     Dates: start: 20090216, end: 20090219
  2. NICHOLASE [Suspect]
     Indication: DRUG USE FOR UNKNOWN INDICATION
     Dosage: 3 DOSAGE FORMS
     Route: 065
     Dates: start: 20090216, end: 20090219
  3. HUSTAGIN [Concomitant]
     Indication: DRUG USE FOR UNKNOWN INDICATION
     Dosage: 3 GM
     Route: 065
     Dates: start: 20090216, end: 20090219
  4. ELIETEN [Concomitant]
     Indication: DRUG USE FOR UNKNOWN INDICATION
     Route: 065
     Dates: start: 20090216, end: 20090219

REACTIONS (2)
  - BLOOD PRESSURE DECREASED [None]
  - DRUG ERUPTION [None]
